APPROVED DRUG PRODUCT: ATIVAN
Active Ingredient: LORAZEPAM
Strength: 2MG
Dosage Form/Route: TABLET;ORAL
Application: N017794 | Product #003 | TE Code: AB
Applicant: BAUSCH HEALTH US LLC
Approved: Approved Prior to Jan 1, 1982 | RLD: Yes | RS: Yes | Type: RX